FAERS Safety Report 4950730-8 (Version None)
Quarter: 2006Q1

REPORT INFORMATION
  Report Type: 
  Country: None (occurrence: None)
  Receive Date: 20060321
  Receipt Date: 20060321
  Transmission Date: 20060701
  Serious: Yes (Hospitalization, Disabling)
  Sender: FDA-Public Use
  Company Number: None

PATIENT
  Age: 75 Year
  Sex: Female

DRUGS (11)
  1. ZOCOR [Suspect]
     Indication: CORONARY ARTERY DISEASE
     Dosage: ORAL ONCE A DAY
     Route: 048
     Dates: start: 20060206
  2. ZOCOR [Suspect]
     Indication: HYPERLIPIDAEMIA
     Dosage: ORAL ONCE A DAY
     Route: 048
     Dates: start: 20060206
  3. METFORMIN [Concomitant]
  4. DILTIAZEM [Concomitant]
  5. LISINOPRIL [Concomitant]
  6. ALLEGRA [Concomitant]
  7. PREDNISONE TAB [Concomitant]
  8. TRIAMTERENE AND HYDROCHLOROTHIAZIDE [Concomitant]
  9. TRAMADOL HCL [Concomitant]
  10. TYLENOL [Concomitant]
  11. METOPROLOL [Concomitant]

REACTIONS (1)
  - ASTHENIA [None]
